FAERS Safety Report 18098730 (Version 2)
Quarter: 2020Q3

REPORT INFORMATION
  Report Type: Report from Study
  Country: CO (occurrence: CO)
  Receive Date: 20200731
  Receipt Date: 20200813
  Transmission Date: 20201103
  Serious: Yes (Other)
  Sender: FDA-Public Use
  Company Number: NVSC2020CO211548

PATIENT
  Sex: Female
  Weight: 64 kg

DRUGS (11)
  1. AMBRISENTAN [Concomitant]
     Active Substance: AMBRISENTAN
     Indication: PULMONARY HYPERTENSION
     Dosage: 10 MG, QD
     Route: 048
  2. MONTELUKAST SODIUM. [Suspect]
     Active Substance: MONTELUKAST SODIUM
     Indication: ASTHMA
     Dosage: 10 MG, QD
     Route: 048
  3. CARVEDILOL. [Suspect]
     Active Substance: CARVEDILOL
     Indication: TACHYCARDIA
     Dosage: 6.25 MG, QD
     Route: 048
  4. AMLODIPINE [Suspect]
     Active Substance: AMLODIPINE BESYLATE
     Indication: PRODUCT USED FOR UNKNOWN INDICATION
     Dosage: 5 MG, Q12H
     Route: 048
  5. XOLAIR [Suspect]
     Active Substance: OMALIZUMAB
     Indication: ASTHMA
     Dosage: 300 MG (EVERY 15 DAYS)(ONCE EVERY 2 WEEKS)
     Route: 058
     Dates: start: 2016
  6. ACETYLSALICYLIC ACID [Concomitant]
     Active Substance: ASPIRIN
     Indication: PULMONARY HYPERTENSION
     Dosage: 100 MG, QD
     Route: 065
  7. SERETIDE [Concomitant]
     Active Substance: FLUTICASONE PROPIONATE\SALMETEROL XINAFOATE
     Indication: PRODUCT USED FOR UNKNOWN INDICATION
     Route: 055
  8. LOSARTAN. [Suspect]
     Active Substance: LOSARTAN
     Indication: HYPERTENSION
     Dosage: 50 MG, Q12H
     Route: 048
  9. SILDENAFIL. [Concomitant]
     Active Substance: SILDENAFIL
     Indication: PULMONARY HYPERTENSION
     Dosage: 50 MG, Q12H
     Route: 048
  10. CALCITROL [Concomitant]
     Indication: PRODUCT USED FOR UNKNOWN INDICATION
     Dosage: 0.5 UG, QD
     Route: 065
  11. CALCIUM+VITAMIN D [Concomitant]
     Active Substance: CALCIUM\VITAMIN D
     Indication: PRODUCT USED FOR UNKNOWN INDICATION
     Dosage: 600 MG CALCIUM, 200 MG VITAMIN D, BID
     Route: 065

REACTIONS (11)
  - Vertigo [Unknown]
  - Immunosuppression [Unknown]
  - Arnold-Chiari malformation [Unknown]
  - Headache [Unknown]
  - Fatigue [Unknown]
  - Metastasis [Unknown]
  - Syncope [Unknown]
  - Thyroid cancer [Unknown]
  - Syringomyelia [Unknown]
  - Eosinophilic granulomatosis with polyangiitis [Unknown]
  - Off label use [Unknown]

NARRATIVE: CASE EVENT DATE: 2018
